FAERS Safety Report 14349990 (Version 2)
Quarter: 2018Q2

REPORT INFORMATION
  Report Type: Report from Study
  Country: US (occurrence: US)
  Receive Date: 20180104
  Receipt Date: 20180405
  Transmission Date: 20180711
  Serious: Yes (Hospitalization, Other)
  Sender: FDA-Public Use
  Company Number: US-JNJFOC-20171114680

PATIENT
  Age: 45 Year
  Sex: Male

DRUGS (19)
  1. ACYCLOVIR. [Concomitant]
     Active Substance: ACYCLOVIR
  2. COZAAR [Concomitant]
     Active Substance: LOSARTAN POTASSIUM
  3. CRESEMBA [Concomitant]
     Active Substance: ISAVUCONAZONIUM SULFATE
  4. INFLIXIMAB [Concomitant]
     Active Substance: INFLIXIMAB
  5. PREDNISONE. [Concomitant]
     Active Substance: PREDNISONE
  6. PROGRAF [Concomitant]
     Active Substance: TACROLIMUS\TACROLIMUS ANHYDROUS
  7. INSULIN [Concomitant]
     Active Substance: INSULIN NOS
  8. JAKAFI [Concomitant]
     Active Substance: RUXOLITINIB
  9. IMBRUVICA [Suspect]
     Active Substance: IBRUTINIB
     Indication: CHRONIC LYMPHOCYTIC LEUKAEMIA
     Route: 048
     Dates: start: 20170818, end: 20171030
  10. NORVASC [Concomitant]
     Active Substance: AMLODIPINE BESYLATE
  11. PRILOSEC [Concomitant]
     Active Substance: OMEPRAZOLE MAGNESIUM
  12. LANTUS [Concomitant]
     Active Substance: INSULIN GLARGINE
  13. URSODIL [Concomitant]
  14. IMBRUVICA [Suspect]
     Active Substance: IBRUTINIB
     Indication: CHRONIC LYMPHOCYTIC LEUKAEMIA
     Route: 048
  15. MAGNESIUM [Concomitant]
     Active Substance: MAGNESIUM
  16. ACTIGALL [Concomitant]
     Active Substance: URSODIOL
  17. IMBRUVICA [Suspect]
     Active Substance: IBRUTINIB
     Indication: CHRONIC LYMPHOCYTIC LEUKAEMIA
     Route: 048
     Dates: start: 20170808, end: 201710
  18. PROTONIX [Concomitant]
     Active Substance: PANTOPRAZOLE SODIUM
  19. BENZYLPENICILLIN [Concomitant]
     Active Substance: PENICILLIN G

REACTIONS (5)
  - Immunosuppression [Unknown]
  - Enterococcal bacteraemia [Not Recovered/Not Resolved]
  - Drug ineffective [Unknown]
  - Pulmonary embolism [Recovering/Resolving]
  - Wound infection staphylococcal [Not Recovered/Not Resolved]

NARRATIVE: CASE EVENT DATE: 20171211
